FAERS Safety Report 8998140 (Version 2)
Quarter: 2013Q3

REPORT INFORMATION
  Report Type: Spontaneous
  Country: US (occurrence: US)
  Receive Date: 20130104
  Receipt Date: 20130806
  Transmission Date: 20140515
  Serious: Yes (Hospitalization, Disabling)
  Sender: FDA-Public Use
  Company Number: US-009507513-1301USA001790

PATIENT
  Sex: Female
  Weight: 104.31 kg

DRUGS (1)
  1. NUVARING [Suspect]
     Indication: CONTRACEPTION
     Dosage: UNK
     Route: 067
     Dates: start: 20091028, end: 200912

REACTIONS (7)
  - Deep vein thrombosis [Unknown]
  - Maternal exposure before pregnancy [Unknown]
  - Dyspnoea [Unknown]
  - Thrombosis [Unknown]
  - Deep vein thrombosis [Unknown]
  - Varicose vein [Unknown]
  - Epistaxis [Unknown]
